FAERS Safety Report 9064975 (Version 1)
Quarter: 2013Q1

REPORT INFORMATION
  Report Type: Report from Study
  Country: US (occurrence: US)
  Receive Date: 20130130
  Receipt Date: 20130130
  Transmission Date: 20140127
  Serious: No
  Sender: FDA-Public Use
  Company Number: US-ABBOTT-12P-163-0969283-00

PATIENT
  Age: 62 Year
  Sex: Female

DRUGS (12)
  1. HUMIRA 40 MG/0.8 ML PEN [Suspect]
     Indication: RHEUMATOID ARTHRITIS
     Route: 058
  2. METHOTREXATE [Concomitant]
     Indication: RHEUMATOID ARTHRITIS
  3. HYDROXYCHLORTOQUINE [Concomitant]
     Indication: RHEUMATOID ARTHRITIS
  4. DICLOFENAC [Concomitant]
     Indication: RHEUMATOID ARTHRITIS
  5. ZANTAC [Concomitant]
     Indication: GASTROOESOPHAGEAL REFLUX DISEASE
  6. KLOR-CON [Concomitant]
     Indication: SUPPLEMENTATION THERAPY
  7. FOLIC ACID [Concomitant]
     Indication: SUPPLEMENTATION THERAPY
  8. CO Q 10 [Concomitant]
     Indication: SUPPLEMENTATION THERAPY
  9. FISH OIL [Concomitant]
     Indication: SUPPLEMENTATION THERAPY
  10. BIOTIN [Concomitant]
     Indication: SUPPLEMENTATION THERAPY
  11. SIMVASTATIN [Concomitant]
     Indication: BLOOD CHOLESTEROL
  12. CELEXA [Concomitant]
     Indication: DEPRESSION

REACTIONS (4)
  - Injection site pain [Recovered/Resolved]
  - Injection site nodule [Unknown]
  - Incorrect dose administered [Unknown]
  - Device malfunction [Unknown]
